FAERS Safety Report 5715461-5 (Version None)
Quarter: 2008Q2

REPORT INFORMATION
  Report Type: 
  Country: None (occurrence: None)
  Receive Date: 20080422
  Receipt Date: 20080409
  Transmission Date: 20081010
  Serious: Yes (Hospitalization)
  Sender: FDA-Public Use
  Company Number: 233456J08USA

PATIENT
  Age: 43 Year
  Sex: Female

DRUGS (4)
  1. REBIF [Suspect]
     Indication: MULTIPLE SCLEROSIS
     Dosage: 44 MCG, 3 IN 1 WEEKS, SUBCUTANEOUS
     Route: 058
     Dates: start: 20071112, end: 20080305
  2. REBIF [Suspect]
     Indication: MULTIPLE SCLEROSIS
     Dosage: 44 MCG, 3 IN 1 WEEKS, SUBCUTANEOUS
     Route: 058
     Dates: start: 20080411
  3. LYRICA [Concomitant]
  4. AMRIX (CYCLOBENZAPRINE) [Concomitant]

REACTIONS (4)
  - CANDIDA SEPSIS [None]
  - CONVULSION [None]
  - LOSS OF CONSCIOUSNESS [None]
  - PNEUMONIA FUNGAL [None]
